FAERS Safety Report 8123826-X (Version None)
Quarter: 2012Q1

REPORT INFORMATION
  Report Type: 
  Country: None (occurrence: None)
  Receive Date: 20120208
  Receipt Date: 20120128
  Transmission Date: 20120608
  Serious: Yes (Other)
  Sender: FDA-Public Use
  Company Number: DE-AMGEN-DEUSP2012007103

PATIENT
  Age: 61 Year
  Sex: Female

DRUGS (10)
  1. CALCIUM [Concomitant]
     Dosage: UNK UNK, UNK
  2. PANTOZOL                           /01263204/ [Concomitant]
     Dosage: UNK UNK, UNK
  3. OLMESARTAN MEDOXOMIL [Concomitant]
     Dosage: UNK UNK, UNK
  4. VITAMIN D [Concomitant]
     Dosage: UNK
  5. LEVOTHYROXINE SODIUM [Concomitant]
     Dosage: UNK UNK, UNK
  6. BISOPROLOL FUMARATE [Concomitant]
     Dosage: 5 MG, UNK
  7. AMITRIPTYLINE HCL [Concomitant]
     Dosage: UNK UNK, UNK
  8. ARCOXIA [Concomitant]
     Dosage: 90 MG, UNK
  9. ENBREL [Suspect]
     Indication: PSORIATIC ARTHROPATHY
     Dosage: 50 MG, WEEKLY
     Route: 058
     Dates: start: 20091101
  10. ARAVA [Concomitant]
     Dosage: 10 MG, UNK

REACTIONS (5)
  - BLOOD CHOLESTEROL INCREASED [None]
  - SURGERY [None]
  - NASOPHARYNGITIS [None]
  - PANOPHTHALMITIS [None]
  - BLOOD PRESSURE INCREASED [None]
